FAERS Safety Report 4308908-2 (Version None)
Quarter: 2004Q1

REPORT INFORMATION
  Report Type: 
  Country: None (occurrence: None)
  Receive Date: 20040227
  Receipt Date: 20040218
  Transmission Date: 20041129
  Serious: Yes (Hospitalization)
  Sender: FDA-Public Use
  Company Number: APP200400187

PATIENT
  Sex: Male

DRUGS (6)
  1. FLUOROURACIL INJ [Suspect]
     Indication: OESOPHAGEAL CARCINOMA
     Dosage: 200 MG/M2 (200 MG/M2, 2 IN 1 WK), INTRAVENOUS
     Route: 042
     Dates: start: 20031203, end: 20031209
  2. TEZACITABINE [Concomitant]
  3. COUMADIN [Concomitant]
  4. LOVENOX [Concomitant]
  5. DILAUDID [Concomitant]
  6. OXYCONTIN [Concomitant]

REACTIONS (4)
  - DECREASED APPETITE [None]
  - DEEP VEIN THROMBOSIS [None]
  - DEHYDRATION [None]
  - THIRST DECREASED [None]
